FAERS Safety Report 8886774 (Version 3)
Quarter: 2013Q2

REPORT INFORMATION
  Report Type: Spontaneous
  Country: HU (occurrence: HU)
  Receive Date: 20121105
  Receipt Date: 20130619
  Transmission Date: 20140414
  Serious: Yes (Other)
  Sender: FDA-Public Use
  Company Number: HU-PFIZER INC-2012273376

PATIENT
  Age: 4 Year
  Sex: Female

DRUGS (12)
  1. PIPERACILLIN/TAZOBACTAM [Suspect]
     Indication: INFECTION
  2. PIPERACILLIN/TAZOBACTAM [Suspect]
     Indication: FEBRILE NEUTROPENIA
  3. CLINDAMYCIN PHOSPHATE [Suspect]
  4. CIPROFLOXACIN HCL [Suspect]
     Indication: INFECTION
  5. FLUCONAZOLE [Suspect]
     Indication: INFECTION
  6. VANCOMYCIN HCL [Suspect]
     Indication: INFECTION
  7. AMIKACIN [Suspect]
  8. PREDNISOLONE [Concomitant]
     Indication: B PRECURSOR TYPE ACUTE LEUKAEMIA
  9. VINCRISTINE [Concomitant]
     Indication: B PRECURSOR TYPE ACUTE LEUKAEMIA
  10. DAUNORUBICIN [Concomitant]
     Indication: B PRECURSOR TYPE ACUTE LEUKAEMIA
  11. L-ASPARAGINASE [Concomitant]
     Indication: B PRECURSOR TYPE ACUTE LEUKAEMIA
  12. METHOTREXATE [Concomitant]
     Indication: B PRECURSOR TYPE ACUTE LEUKAEMIA
     Route: 037

REACTIONS (6)
  - Drug ineffective [Not Recovered/Not Resolved]
  - Infection [Not Recovered/Not Resolved]
  - Anal fissure [None]
  - Pseudomonas test positive [None]
  - Diarrhoea [None]
  - Abscess [None]
